FAERS Safety Report 4430588-6 (Version None)
Quarter: 2004Q3

REPORT INFORMATION
  Report Type: 
  Country: None (occurrence: None)
  Receive Date: 20040819
  Receipt Date: 20040819
  Transmission Date: 20050211
  Serious: Yes (Death)
  Sender: FDA-Public Use
  Company Number: None

PATIENT
  Sex: Male
  Weight: 97.5234 kg

DRUGS (10)
  1. IMURAN [Suspect]
     Indication: INTERSTITIAL LUNG DISEASE
     Dosage: 150 MG QD
     Dates: start: 20040628
  2. PREDNISONE [Suspect]
     Indication: INTERSTITIAL LUNG DISEASE
     Dosage: 10 MG QD
     Dates: start: 20040726
  3. METFORMIN HCL [Concomitant]
  4. AMARYL [Concomitant]
  5. TALWIN [Concomitant]
  6. NEXIUM [Concomitant]
  7. PROSCAR [Concomitant]
  8. PLAVIX [Concomitant]
  9. ZOCOR [Concomitant]
  10. COMBIVENT [Concomitant]

REACTIONS (4)
  - ACUTE RESPIRATORY DISTRESS SYNDROME [None]
  - DISEASE PROGRESSION [None]
  - INTERSTITIAL LUNG DISEASE [None]
  - PULMONARY ALVEOLAR HAEMORRHAGE [None]
